FAERS Safety Report 10956870 (Version 1)
Quarter: 2015Q1

REPORT INFORMATION
  Report Type: Spontaneous
  Country: US (occurrence: None)
  Receive Date: 20150226
  Receipt Date: 20150226
  Transmission Date: 20150721
  Serious: Yes (Other)
  Sender: FDA-Public Use
  Company Number: TPA2013A07575

PATIENT
  Age: 72 Year
  Sex: Male
  Weight: 90.7 kg

DRUGS (4)
  1. JANUVIA [Concomitant]
     Active Substance: SITAGLIPTIN PHOSPHATE
  2. ACTOS [Suspect]
     Active Substance: PIOGLITAZONE HYDROCHLORIDE
     Indication: TYPE 2 DIABETES MELLITUS
     Dates: start: 200609, end: 201107
  3. METFORMIN [Concomitant]
     Active Substance: METFORMIN HYDROCHLORIDE
  4. DIABETA [Concomitant]
     Active Substance: GLYBURIDE

REACTIONS (2)
  - Pain [None]
  - Bladder transitional cell carcinoma [None]

NARRATIVE: CASE EVENT DATE: 200901
